FAERS Safety Report 24060302 (Version 3)
Quarter: 2024Q3

REPORT INFORMATION
  Report Type: Spontaneous
  Country: BR (occurrence: BR)
  Receive Date: 20240708
  Receipt Date: 20240722
  Transmission Date: 20241016
  Serious: Yes (Other)
  Sender: ELI LILLY AND CO
  Company Number: BR-ELI_LILLY_AND_COMPANY-BR202406013240

PATIENT
  Age: 56 Year
  Sex: Male
  Weight: 120 kg

DRUGS (8)
  1. HUMALOG [Interacting]
     Active Substance: INSULIN LISPRO
     Indication: Type 2 diabetes mellitus
     Dosage: 4 INTERNATIONAL UNIT, TID
     Route: 065
     Dates: start: 2014
  2. HUMALOG [Interacting]
     Active Substance: INSULIN LISPRO
     Dosage: 12 INTERNATIONAL UNIT, TID
     Route: 065
  3. HUMALOG [Interacting]
     Active Substance: INSULIN LISPRO
     Dosage: 16 INTERNATIONAL UNIT, EACH MORNING
     Route: 065
  4. HUMALOG [Interacting]
     Active Substance: INSULIN LISPRO
     Dosage: 8 INTERNATIONAL UNIT, EACH MORNING
     Route: 065
  5. HUMALOG [Interacting]
     Active Substance: INSULIN LISPRO
     Dosage: UNK UNK, UNKNOWN
     Route: 065
  6. BASAGLAR [Interacting]
     Active Substance: INSULIN GLARGINE
     Indication: Type 2 diabetes mellitus
     Dosage: 30 INTERNATIONAL UNIT, EACH MORNING
     Route: 065
     Dates: start: 20240619, end: 20240624
  7. BASAGLAR [Interacting]
     Active Substance: INSULIN GLARGINE
     Dosage: UNK UNK, UNKNOWN
     Route: 065
  8. NPH INSULIN [Concomitant]
     Active Substance: INSULIN BEEF
     Indication: Type 2 diabetes mellitus
     Dosage: 20 INTERNATIONAL UNIT, UNKNOWN
     Route: 065

REACTIONS (14)
  - Venous occlusion [Unknown]
  - Arrhythmia [Unknown]
  - Congenital cystic kidney disease [Unknown]
  - Diabetes mellitus inadequate control [Recovered/Resolved]
  - Blood pressure abnormal [Recovered/Resolved]
  - Immune system disorder [Unknown]
  - Back pain [Unknown]
  - Vision blurred [Recovered/Resolved]
  - Fatigue [Recovered/Resolved]
  - Abdominal pain [Recovered/Resolved]
  - Myalgia [Unknown]
  - Blood glucose increased [Unknown]
  - Inhibitory drug interaction [Unknown]
  - Drug ineffective [Unknown]

NARRATIVE: CASE EVENT DATE: 20240624
